FAERS Safety Report 18445264 (Version 1)
Quarter: 2020Q4

REPORT INFORMATION
  Report Type: Spontaneous
  Country: GB (occurrence: GB)
  Receive Date: 20201030
  Receipt Date: 20201030
  Transmission Date: 20210114
  Serious: Yes (Other)
  Sender: FDA-Public Use
  Company Number: GB-009507513-2010GBR009818

PATIENT
  Age: 59 Year
  Sex: Male
  Weight: 86 kg

DRUGS (6)
  1. GLICLAZIDE [Concomitant]
     Active Substance: GLICLAZIDE
     Indication: TYPE 2 DIABETES MELLITUS
     Dosage: 320 MILLIGRAM, QD
     Route: 048
     Dates: end: 20051101
  2. LEVOTHYROXINE SODIUM. [Concomitant]
     Active Substance: LEVOTHYROXINE SODIUM
  3. LISINOPRIL. [Suspect]
     Active Substance: LISINOPRIL
     Indication: HYPERTENSION
     Dosage: UNK
     Dates: end: 200506
  4. LANTUS [Suspect]
     Active Substance: INSULIN GLARGINE
     Dosage: DOSE: 30-32; DOSE UNIT: UNITS
     Route: 058
     Dates: end: 20051020
  5. LANTUS [Suspect]
     Active Substance: INSULIN GLARGINE
     Dosage: DOSE UNIT: UNITS
     Route: 058
     Dates: start: 20050611
  6. METFORMIN [Concomitant]
     Active Substance: METFORMIN HYDROCHLORIDE
     Indication: TYPE 2 DIABETES MELLITUS
     Dosage: 1500 MILLIGRAM, QD
     Route: 048

REACTIONS (4)
  - Swelling face [Recovered/Resolved]
  - Rash [Recovered/Resolved]
  - Blister [Recovered/Resolved]
  - Pruritus [Recovered/Resolved]

NARRATIVE: CASE EVENT DATE: 20051019
